FAERS Safety Report 6440736-4 (Version None)
Quarter: 2009Q4

REPORT INFORMATION
  Report Type: 
  Country: None (occurrence: None)
  Receive Date: 20091116
  Receipt Date: 20091016
  Transmission Date: 20100525
  Serious: No
  Sender: FDA-Public Use
  Company Number: US-BAYER-200936558NA

PATIENT
  Age: 35 Year
  Sex: Female

DRUGS (1)
  1. AVELOX [Suspect]
     Indication: DRUG USE FOR UNKNOWN INDICATION
     Dates: start: 20090921, end: 20090924

REACTIONS (5)
  - DIARRHOEA [None]
  - ERYTHEMA [None]
  - INSOMNIA [None]
  - NAUSEA [None]
  - NERVOUSNESS [None]
